FAERS Safety Report 4390740-5 (Version None)
Quarter: 2004Q3

REPORT INFORMATION
  Report Type: 
  Country: None (occurrence: None)
  Receive Date: 20040706
  Receipt Date: 20040706
  Transmission Date: 20050211
  Serious: Yes (Other)
  Sender: FDA-Public Use
  Company Number: None

PATIENT
  Age: 57 Year
  Sex: Female
  Weight: 134.2647 kg

DRUGS (1)
  1. CYPHER STENT [Suspect]

REACTIONS (2)
  - DIZZINESS [None]
  - RASH [None]
